FAERS Safety Report 14311970 (Version 1)
Quarter: 2017Q4

REPORT INFORMATION
  Report Type: Spontaneous
  Country: US (occurrence: US)
  Receive Date: 20171221
  Receipt Date: 20171221
  Transmission Date: 20180321
  Serious: No
  Sender: FDA-Public Use
  Company Number: US-009507513-1711USA010047

PATIENT
  Age: 66 Year
  Sex: Female

DRUGS (1)
  1. BELSOMRA [Suspect]
     Active Substance: SUVOREXANT
     Indication: INSOMNIA
     Dosage: 10 MG, EVENING
     Route: 048
     Dates: start: 20171121, end: 20171121

REACTIONS (8)
  - Wrong technique in product usage process [Unknown]
  - Drug ineffective [Recovering/Resolving]
  - Fatigue [Recovering/Resolving]
  - Headache [Recovering/Resolving]
  - Restlessness [Recovering/Resolving]
  - Somnolence [Recovering/Resolving]
  - Poor quality sleep [Recovering/Resolving]
  - Malaise [Recovering/Resolving]

NARRATIVE: CASE EVENT DATE: 201711
